FAERS Safety Report 25424897 (Version 1)
Quarter: 2025Q2

REPORT INFORMATION
  Report Type: Spontaneous
  Country: US (occurrence: US)
  Receive Date: 20250611
  Receipt Date: 20250611
  Transmission Date: 20250716
  Serious: No
  Sender: ADVANZ PHARMA
  Company Number: US-ADVANZ PHARMA-202408006643

PATIENT

DRUGS (1)
  1. PHOTOFRIN [Suspect]
     Active Substance: PORFIMER SODIUM
     Indication: Product used for unknown indication

REACTIONS (3)
  - Foreign body [Recovered/Resolved]
  - Device failure [Unknown]
  - Device breakage [Unknown]

NARRATIVE: CASE EVENT DATE: 20240802
